FAERS Safety Report 21376299 (Version 1)
Quarter: 2022Q3

REPORT INFORMATION
  Report Type: Spontaneous
  Country: DE (occurrence: DE)
  Receive Date: 20220926
  Receipt Date: 20220926
  Transmission Date: 20221026
  Serious: Yes (Hospitalization, Other)
  Sender: FDA-Public Use
  Company Number: DE-ADRED-08094-01

PATIENT

DRUGS (3)
  1. DOXYCYCLINE [Suspect]
     Active Substance: DOXYCYCLINE
     Indication: Arthropod bite
     Dosage: UNK
     Route: 065
     Dates: start: 202106, end: 20210703
  2. CHOLECALCIFEROL [Concomitant]
     Active Substance: CHOLECALCIFEROL
     Indication: Product used for unknown indication
     Dosage: 20000 INTERNATIONAL UNIT, ONE ON SUNDAYS
     Route: 065
  3. GINKGO [Concomitant]
     Active Substance: GINKGO
     Indication: Product used for unknown indication
     Dosage: 120 MILLIGRAM, QD
     Route: 065

REACTIONS (7)
  - Diverticulitis [Unknown]
  - Diarrhoea haemorrhagic [Unknown]
  - Headache [Unknown]
  - Diarrhoea [Unknown]
  - Mucous stools [Unknown]
  - Abdominal pain lower [Unknown]
  - Product use in unapproved indication [Recovered/Resolved]
